FAERS Safety Report 8531087 (Version 2)
Quarter: 2013Q3

REPORT INFORMATION
  Report Type: Spontaneous
  Country: US (occurrence: US)
  Receive Date: 20120426
  Receipt Date: 20130814
  Transmission Date: 20140515
  Serious: Yes (Hospitalization, Other)
  Sender: FDA-Public Use
  Company Number: US-PFIZER INC-2012101839

PATIENT
  Age: 60 Year
  Sex: Male
  Weight: 111 kg

DRUGS (14)
  1. LYRICA [Suspect]
     Indication: NERVE INJURY
     Dosage: 150 MG, 3X/DAY
     Route: 048
     Dates: start: 2011
  2. LYRICA [Suspect]
     Indication: NEURALGIA
     Dosage: 150 MG, 2X/DAY
     Route: 048
  3. EFFEXOR XR [Suspect]
     Dosage: 75 MG, 3X/DAY
     Route: 048
  4. LACTULOSE [Concomitant]
     Indication: CONSTIPATION
     Dosage: 30ML TWICE A DAY AS NEEDED
     Route: 048
     Dates: start: 2002, end: 20130506
  5. COREG [Concomitant]
     Indication: CARDIAC FAILURE
     Dosage: 50 MG, 2X/DAY
     Route: 048
     Dates: start: 2002, end: 20130430
  6. OXYCODONE [Concomitant]
     Dosage: UNK
  7. FENOFIBRATE [Concomitant]
     Dosage: UNK
  8. FERROUS SULFATE [Concomitant]
     Dosage: UNK
  9. IMDUR [Concomitant]
     Dosage: UNK
  10. SYNTHROID [Concomitant]
     Dosage: UNK
  11. CRESTOR [Concomitant]
     Dosage: UNK
  12. LORAZEPAM [Concomitant]
     Dosage: UNK
  13. MORPHINE [Concomitant]
     Dosage: UNK
  14. OXYBUTYNIN [Concomitant]
     Dosage: UNK

REACTIONS (2)
  - Cerebrovascular accident [Unknown]
  - Cardiac failure congestive [Unknown]
